FAERS Safety Report 7053509-9 (Version None)
Quarter: 2010Q4

REPORT INFORMATION
  Report Type: 
  Country: None (occurrence: None)
  Receive Date: 20101013
  Receipt Date: 20101005
  Transmission Date: 20110411
  Serious: Yes (Hospitalization)
  Sender: FDA-Public Use
  Company Number: 2010SP048586

PATIENT
  Age: 35 Year
  Sex: Female

DRUGS (2)
  1. PUREGON (FOLLITROPIN BETA /01348901/) [Suspect]
     Indication: IN VITRO FERTILISATION
     Dosage: 125 IU;QD;SC
     Route: 058
     Dates: start: 20100429, end: 20100503
  2. SUPERFACT (BUSERELIN ACETATE) [Suspect]
     Indication: IN VITRO FERTILISATION
     Dosage: 2 MG;QD;SC
     Route: 058
     Dates: start: 20100429, end: 20100503

REACTIONS (1)
  - CLONIC CONVULSION [None]
